FAERS Safety Report 8554257-6 (Version None)
Quarter: 2012Q3

REPORT INFORMATION
  Report Type: 
  Country: None (occurrence: None)
  Receive Date: 20120731
  Receipt Date: 20120716
  Transmission Date: 20120928
  Serious: Yes (Other)
  Sender: FDA-Public Use
  Company Number: PL-WATSON-2012-13147

PATIENT
  Age: 3 Year
  Sex: Male

DRUGS (7)
  1. FLUDARABINE PHOSPHATE [Suspect]
     Indication: BONE MARROW CONDITIONING REGIMEN
     Dosage: 5X30 MG/M2
     Route: 065
  2. CYCLOSPORINE [Suspect]
     Indication: PROPHYLAXIS AGAINST GRAFT VERSUS HOST DISEASE
     Dosage: FROM DAY +1 TO +20
     Route: 065
  3. METHYLPREDNISOLONE [Suspect]
     Indication: PROPHYLAXIS AGAINST GRAFT VERSUS HOST DISEASE
     Dosage: DAY +1 TO +20
     Route: 065
  4. PREDNISONE TAB [Suspect]
     Indication: ATAXIA TELANGIECTASIA
     Dosage: UNK
     Route: 065
  5. PREDNISONE TAB [Suspect]
     Indication: T-CELL TYPE ACUTE LEUKAEMIA
  6. BUSULFAN [Suspect]
     Indication: BONE MARROW CONDITIONING REGIMEN
     Dosage: 2 X 1 MG/KG BODY WEIGHT
     Route: 065
  7. ANTI-THYMOCYTE GLOBULIN NOS [Suspect]
     Indication: BONE MARROW CONDITIONING REGIMEN
     Dosage: 3 X 20 MG/KG BODY WEIGHT
     Route: 065

REACTIONS (7)
  - DRUG INEFFECTIVE [None]
  - MUCOSAL INFLAMMATION [None]
  - AGRANULOCYTOSIS [None]
  - POST TRANSPLANT LYMPHOPROLIFERATIVE DISORDER [None]
  - ADENOVIRUS INFECTION [None]
  - BK VIRUS INFECTION [None]
  - LEUKOPENIA [None]
